FAERS Safety Report 18998799 (Version 9)
Quarter: 2021Q4

REPORT INFORMATION
  Report Type: Spontaneous
  Country: PL (occurrence: PL)
  Receive Date: 20210312
  Receipt Date: 20211117
  Transmission Date: 20220303
  Serious: Yes (Life-Threatening, Hospitalization, Other)
  Sender: FDA-Public Use
  Company Number: PL-AUROBINDO-AUR-APL-2021-009497

PATIENT
  Age: 54 Year
  Sex: Female

DRUGS (20)
  1. ATORVASTATIN [Interacting]
     Active Substance: ATORVASTATIN
     Indication: Dyslipidaemia
     Dosage: 40 MILLIGRAM, DAILY
     Route: 065
  2. METOPROLOL [Interacting]
     Active Substance: METOPROLOL
     Indication: Bradycardia
     Dosage: UNK
     Route: 065
  3. NEBIVOLOL [Interacting]
     Active Substance: NEBIVOLOL
     Indication: Hypertension
     Dosage: 5 MILLIGRAM, DAILY
     Route: 065
  4. NEBIVOLOL [Interacting]
     Active Substance: NEBIVOLOL
     Indication: Dyslipidaemia
  5. NEBIVOLOL [Interacting]
     Active Substance: NEBIVOLOL
     Indication: Back pain
  6. PERINDOPRIL [Suspect]
     Active Substance: PERINDOPRIL
     Indication: Hypertension
     Dosage: UNK
     Route: 065
  7. PERINDOPRIL [Suspect]
     Active Substance: PERINDOPRIL
     Indication: Lip swelling
  8. ROSUVASTATIN [Suspect]
     Active Substance: ROSUVASTATIN
     Indication: Product used for unknown indication
     Dosage: UNK
     Route: 065
  9. AMLODIPINE [Interacting]
     Active Substance: AMLODIPINE BESYLATE
     Indication: Hypertension
     Dosage: 10 MILLIGRAM, DAILY
     Route: 065
  10. CELECOXIB [Interacting]
     Active Substance: CELECOXIB
     Indication: Back pain
     Dosage: 200 MILLIGRAM, ONCE A DAY
     Route: 065
  11. CELECOXIB [Interacting]
     Active Substance: CELECOXIB
     Indication: Spinal pain
     Dosage: UNK
     Route: 065
  12. GINKGO [Interacting]
     Active Substance: GINKGO
     Indication: Spinal pain
     Dosage: 240 MILLIGRAM, ONCE A DAY
     Route: 065
  13. GINKGO [Interacting]
     Active Substance: GINKGO
     Indication: Somnolence
  14. RISPERIDONE [Interacting]
     Active Substance: RISPERIDONE
     Indication: Schizophrenia
     Dosage: 4 MILLIGRAM, ONCE A DAY
     Route: 065
  15. RISPERIDONE [Interacting]
     Active Substance: RISPERIDONE
     Indication: Schizophrenia
     Dosage: 4 MILLIGRAM, ONCE A DAY
     Route: 065
  16. AMLODIPINE [Concomitant]
     Active Substance: AMLODIPINE BESYLATE
     Indication: Hypertension
     Dosage: 10 MILLIGRAM, ONCE A DAY
     Route: 065
  17. ATORVASTATIN [Concomitant]
     Active Substance: ATORVASTATIN
     Indication: Dyslipidaemia
     Dosage: 40 MILLIGRAM, ONCE A DAY
     Route: 065
  18. NEBIVOLOL [Concomitant]
     Active Substance: NEBIVOLOL
     Indication: Dyslipidaemia
     Dosage: UNK
     Route: 065
  19. NEBIVOLOL [Concomitant]
     Active Substance: NEBIVOLOL
     Indication: Hypertension
  20. NEBIVOLOL [Concomitant]
     Active Substance: NEBIVOLOL
     Indication: Back pain

REACTIONS (7)
  - Angioedema [Recovered/Resolved]
  - Drug interaction [Recovered/Resolved]
  - Swollen tongue [Recovered/Resolved]
  - Bradycardia [Recovered/Resolved]
  - Lip oedema [Recovered/Resolved]
  - Tongue oedema [Recovered/Resolved]
  - Off label use [Unknown]
